FAERS Safety Report 7266340-6 (Version None)
Quarter: 2011Q1

REPORT INFORMATION
  Report Type: 
  Country: None (occurrence: None)
  Receive Date: 20110120
  Receipt Date: 20110104
  Transmission Date: 20110831
  Serious: Yes (Hospitalization, Disabling)
  Sender: FDA-Public Use
  Company Number: 2011000076

PATIENT
  Age: 45 Year
  Sex: Male

DRUGS (2)
  1. MINOCYCLINE HCL [Concomitant]
  2. TARCEVA [Suspect]
     Indication: LUNG NEOPLASM MALIGNANT
     Dosage: (150 MG,QD),ORAL
     Route: 048
     Dates: start: 20091130

REACTIONS (2)
  - HYPOKINESIA [None]
  - DISABILITY [None]
